FAERS Safety Report 10231325 (Version 1)
Quarter: 2014Q2

REPORT INFORMATION
  Report Type: Report from Study
  Country: IT (occurrence: IT)
  Receive Date: 20140611
  Receipt Date: 20140611
  Transmission Date: 20141212
  Serious: Yes (Hospitalization)
  Sender: FDA-Public Use
  Company Number: PHHO2013IT006760

PATIENT
  Sex: 0

DRUGS (2)
  1. NEORAL [Suspect]
     Indication: RENAL TRANSPLANT
     Dosage: UNK
  2. CERTICAN [Suspect]
     Indication: RENAL TRANSPLANT
     Dosage: 1.5 MG, QD
     Dates: start: 20120528

REACTIONS (2)
  - Toxicity to various agents [Recovered/Resolved]
  - Kidney transplant rejection [Recovered/Resolved]
